FAERS Safety Report 24466971 (Version 1)
Quarter: 2024Q4

REPORT INFORMATION
  Report Type: Report from Study
  Country: US (occurrence: US)
  Receive Date: 20241018
  Receipt Date: 20241018
  Transmission Date: 20250114
  Serious: No
  Sender: ROCHE
  Company Number: US-ROCHE-3553056

PATIENT

DRUGS (3)
  1. XOLAIR [Suspect]
     Active Substance: OMALIZUMAB
     Indication: Product used for unknown indication
     Route: 065
  2. PREDNISONE [Concomitant]
     Active Substance: PREDNISONE
  3. MINOCYCLINE [Concomitant]
     Active Substance: MINOCYCLINE HYDROCHLORIDE

REACTIONS (8)
  - Chest pain [Unknown]
  - Paraesthesia [Unknown]
  - Headache [Unknown]
  - Decreased appetite [Unknown]
  - Hypertension [Unknown]
  - Vasculitis [Unknown]
  - Fungal skin infection [Unknown]
  - Skin bacterial infection [Unknown]
